FAERS Safety Report 6704526-7 (Version None)
Quarter: 2010Q2

REPORT INFORMATION
  Report Type: 
  Country: None (occurrence: None)
  Receive Date: 20100430
  Receipt Date: 20100419
  Transmission Date: 20101027
  Serious: No
  Sender: FDA-Public Use
  Company Number: US-B.I. PHARMACEUTICALS,INC./RIDGEFIELD-2010-BP-03025BP

PATIENT
  Sex: Male

DRUGS (6)
  1. SPIRIVA [Suspect]
     Indication: CHRONIC OBSTRUCTIVE PULMONARY DISEASE
     Dosage: 18 MCG
     Route: 055
     Dates: start: 20081101
  2. WARFARIN SODIUM [Concomitant]
     Indication: CARDIAC DISORDER
     Dates: start: 20080501
  3. PLAVIX [Concomitant]
     Indication: CARDIAC DISORDER
     Dates: start: 20080501
  4. VENTOLIN [Concomitant]
  5. COMBIVENT [Concomitant]
  6. ADVAIR DISKUS 100/50 [Concomitant]

REACTIONS (1)
  - DRUG INEFFECTIVE [None]
